FAERS Safety Report 10640017 (Version 1)
Quarter: 2014Q4

REPORT INFORMATION
  Report Type: Spontaneous
  Country: JP (occurrence: JP)
  Receive Date: 20141209
  Receipt Date: 20141209
  Transmission Date: 20150529
  Serious: No
  Sender: FDA-Public Use
  Company Number: JP-JNJFOC-20141201764

PATIENT
  Age: 59 Year
  Sex: Male

DRUGS (1)
  1. DUROTEP MT [Suspect]
     Active Substance: FENTANYL
     Indication: CANCER PAIN
     Route: 062
     Dates: start: 20141124

REACTIONS (1)
  - Wrong technique in drug usage process [Unknown]

NARRATIVE: CASE EVENT DATE: 20141124
